FAERS Safety Report 22372965 (Version 1)
Quarter: 2023Q2

REPORT INFORMATION
  Report Type: Spontaneous
  Country: ID (occurrence: None)
  Receive Date: 20230526
  Receipt Date: 20230526
  Transmission Date: 20230721
  Serious: Yes (Hospitalization, Other)
  Sender: FDA-Public Use
  Company Number: 2023A120718

PATIENT
  Age: 81 Year
  Sex: Male

DRUGS (5)
  1. BUDESONIDE [Suspect]
     Active Substance: BUDESONIDE
     Indication: Chronic obstructive pulmonary disease
     Dosage: UNKNOWN
     Route: 055
  2. AZITHROMYCIN [Concomitant]
     Active Substance: AZITHROMYCIN
  3. METHYLPREDNISOLONE [Concomitant]
     Active Substance: METHYLPREDNISOLONE
  4. ALBUTEROL [Concomitant]
     Active Substance: ALBUTEROL
  5. FENOTEROL [Concomitant]
     Active Substance: FENOTEROL

REACTIONS (5)
  - Dyspnoea [Unknown]
  - Cerebrovascular accident [Unknown]
  - Condition aggravated [Unknown]
  - Pneumonia [Unknown]
  - Dysphagia [Unknown]

NARRATIVE: CASE EVENT DATE: 20220301
